FAERS Safety Report 6203087-9 (Version None)
Quarter: 2009Q2

REPORT INFORMATION
  Report Type: 
  Country: None (occurrence: None)
  Receive Date: 20090521
  Receipt Date: 20090521
  Transmission Date: 20091009
  Serious: Yes (Life-Threatening, Disabling, Other)
  Sender: FDA-Public Use
  Company Number: None

PATIENT
  Age: 49 Year
  Sex: Female
  Weight: 56.6996 kg

DRUGS (1)
  1. OXAZEPAM [Suspect]
     Indication: ANXIETY
     Dosage: 10MG TWICE DAILY PO FROM 03/07 TO CURRENT
     Route: 048
     Dates: start: 20070301

REACTIONS (13)
  - DEATH OF RELATIVE [None]
  - DIZZINESS [None]
  - DRUG DEPENDENCE [None]
  - DYSPNOEA [None]
  - ELECTROCARDIOGRAM CHANGE [None]
  - GASTROINTESTINAL DISORDER [None]
  - HEART RATE IRREGULAR [None]
  - INFLUENZA LIKE ILLNESS [None]
  - NAUSEA [None]
  - PALPITATIONS [None]
  - VERTIGO [None]
  - VISION BLURRED [None]
  - WITHDRAWAL SYNDROME [None]
